FAERS Safety Report 17849882 (Version 1)
Quarter: 2020Q2

REPORT INFORMATION
  Report Type: Spontaneous
  Country: US (occurrence: US)
  Receive Date: 20200602
  Receipt Date: 20200602
  Transmission Date: 20200714
  Serious: Yes (Hospitalization)
  Sender: FDA-Public Use
  Company Number: US-MYLANLABS-2020M1053329

PATIENT
  Age: 89 Year
  Sex: Male

DRUGS (7)
  1. DOXYCYCLINE. [Concomitant]
     Active Substance: DOXYCYCLINE
     Indication: OCULAR SURFACE SQUAMOUS NEOPLASIA
     Dosage: UNK
     Route: 048
  2. INTERFERON ALFA 2B [Suspect]
     Active Substance: INTERFERON ALFA-2B
     Indication: OCULAR SURFACE SQUAMOUS NEOPLASIA
     Dosage: UNK UNK, QID, DOSAGE: 1 MILLION UNITS/1ML FOUR TIMES PER DAY
     Route: 061
  3. PREDNISOLONE. [Suspect]
     Active Substance: PREDNISOLONE
     Indication: STEROID THERAPY
     Dosage: WEEKLY 4, 3, 2, 1 TAPER
     Route: 065
  4. LOTEPREDNOL ETABONATE [Suspect]
     Active Substance: LOTEPREDNOL ETABONATE
     Indication: STEROID THERAPY
     Dosage: UNK, TID, APPLIED THREE TIMES PER DAY TO THE LEFT EYE
     Route: 061
  5. VIGAMOX [Concomitant]
     Active Substance: MOXIFLOXACIN HYDROCHLORIDE
     Indication: ANTIBIOTIC THERAPY
     Dosage: UNK, QID, ADMINISTERED FOUR TIMES PER DAY FOR FOUR WEEKS
     Route: 065
  6. LATANOPROST. [Suspect]
     Active Substance: LATANOPROST
     Indication: GLAUCOMA
     Dosage: APPLIED EVERY NIGHT TO THE LEFT EYE
     Route: 065
  7. DORZOLAMIDE [Suspect]
     Active Substance: DORZOLAMIDE
     Indication: GLAUCOMA
     Dosage: APPLIED EVERY MORNING TO THE LEFT EYE
     Route: 065

REACTIONS (2)
  - Corneal perforation [Recovering/Resolving]
  - Ulcerative keratitis [Recovering/Resolving]
